FAERS Safety Report 5709520-0 (Version None)
Quarter: 2008Q2

REPORT INFORMATION
  Report Type: 
  Country: None (occurrence: None)
  Receive Date: 20080418
  Receipt Date: 20080407
  Transmission Date: 20081010
  Serious: Yes (Hospitalization)
  Sender: FDA-Public Use
  Company Number: US-GILEAD-2008-0015996

PATIENT
  Sex: Female
  Weight: 97.61 kg

DRUGS (14)
  1. AMBRISENTAN [Suspect]
     Indication: PULMONARY HYPERTENSION
     Route: 065
     Dates: start: 20080312
  2. VERAPAMIL [Concomitant]
     Indication: HYPERTENSION
     Route: 048
     Dates: start: 20000101
  3. CALCIUM [Concomitant]
     Indication: OSTEOPENIA
     Route: 048
     Dates: start: 20050101
  4. FOSAMAX [Concomitant]
     Indication: OSTEOPENIA
     Route: 048
     Dates: start: 20040101
  5. VITAMIN CAP [Concomitant]
     Indication: PROPHYLAXIS
     Route: 048
     Dates: start: 20020101
  6. OXYGEN [Concomitant]
     Indication: DYSPNOEA
     Route: 045
     Dates: start: 20070221
  7. OXYGEN [Concomitant]
     Indication: OXYGEN SATURATION DECREASED
  8. PREDNISONE [Concomitant]
     Indication: SARCOIDOSIS
     Route: 048
     Dates: start: 20071205
  9. PREDNISONE [Concomitant]
     Route: 048
     Dates: start: 20070716, end: 20071202
  10. PREDNISONE [Concomitant]
     Route: 048
     Dates: start: 20070530, end: 20070605
  11. PREDNISONE [Concomitant]
     Route: 048
     Dates: start: 20070522, end: 20070529
  12. PREDNISONE [Concomitant]
     Route: 048
     Dates: start: 20070417, end: 20070521
  13. HYDROCHLOROTHIAZIDE [Concomitant]
     Indication: OEDEMA PERIPHERAL
     Dosage: 37.5-25 MG
     Route: 048
     Dates: start: 20071224
  14. ANTIBIOTIC OINTMENT [Concomitant]
     Indication: SKIN ULCER
     Route: 061
     Dates: start: 20070716

REACTIONS (1)
  - PNEUMONIA [None]
